FAERS Safety Report 23741049 (Version 1)
Quarter: 2024Q2

REPORT INFORMATION
  Report Type: Report from Study
  Country: IN (occurrence: None)
  Receive Date: 20240415
  Receipt Date: 20240415
  Transmission Date: 20240716
  Serious: Yes (Death, Other)
  Sender: FDA-Public Use
  Company Number: 2020SF13189

PATIENT
  Age: 22437 Day
  Sex: Female

DRUGS (1)
  1. LYNPARZA [Suspect]
     Active Substance: OLAPARIB
     Indication: Ovarian cancer
     Route: 048
     Dates: end: 20200726

REACTIONS (2)
  - Myocardial infarction [Fatal]
  - Gastric infection [Unknown]

NARRATIVE: CASE EVENT DATE: 20200729
